FAERS Safety Report 9524748 (Version 2)
Quarter: 2014Q1

REPORT INFORMATION
  Report Type: Spontaneous
  Country: FR (occurrence: FR)
  Receive Date: 20130916
  Receipt Date: 20140106
  Transmission Date: 20141002
  Serious: Yes (Hospitalization, Other)
  Sender: FDA-Public Use
  Company Number: PHHY2013FR101776

PATIENT
  Sex: Male

DRUGS (5)
  1. GLIVEC [Suspect]
     Indication: CHRONIC MYELOID LEUKAEMIA
     Dosage: 400 MG, QD
     Route: 048
     Dates: start: 20060927, end: 20100627
  2. GLIVEC [Suspect]
     Dosage: 600 MG, QD
     Route: 048
     Dates: start: 20100628, end: 20100823
  3. GLIVEC [Suspect]
     Dosage: 800 MG, QD
     Route: 048
     Dates: start: 20100824, end: 20130108
  4. GLIVEC [Suspect]
     Dosage: 600 MG, QD
     Route: 048
     Dates: start: 20130109, end: 20130910
  5. GLIVEC [Suspect]
     Dosage: 400 MG, QD
     Route: 048
     Dates: start: 20131022

REACTIONS (4)
  - Prostate cancer [Unknown]
  - Second primary malignancy [Unknown]
  - Urinary retention [Unknown]
  - Thrombocytopenia [Unknown]
